FAERS Safety Report 7385605-0 (Version None)
Quarter: 2011Q1

REPORT INFORMATION
  Report Type: 
  Country: None (occurrence: None)
  Receive Date: 20110331
  Receipt Date: 20110322
  Transmission Date: 20110831
  Serious: No
  Sender: FDA-Public Use
  Company Number: US-BIOGENIDEC-2011BI011163

PATIENT
  Age: 39 Year
  Sex: Male

DRUGS (1)
  1. TYSABRI [Suspect]
     Indication: MULTIPLE SCLEROSIS
     Route: 042
     Dates: start: 20061004

REACTIONS (6)
  - HERPES ZOSTER [None]
  - PRURITUS [None]
  - RESPIRATORY TRACT CONGESTION [None]
  - RASH [None]
  - STRESS [None]
  - FATIGUE [None]
